FAERS Safety Report 21407351 (Version 2)
Quarter: 2022Q4

REPORT INFORMATION
  Report Type: Spontaneous
  Country: US (occurrence: US)
  Receive Date: 20221004
  Receipt Date: 20221005
  Transmission Date: 20230112
  Serious: Yes (Hospitalization, Other)
  Sender: FDA-Public Use
  Company Number: US-MLMSERVICE-20220915-3792146-1

PATIENT
  Age: 32 Year
  Sex: Male

DRUGS (8)
  1. FENTANYL CITRATE [Suspect]
     Active Substance: FENTANYL CITRATE
     Indication: Cancer pain
     Dosage: 31600 UG
     Route: 041
  2. FENTANYL CITRATE [Suspect]
     Active Substance: FENTANYL CITRATE
     Dosage: 18400 UG
     Route: 041
  3. FENTANYL CITRATE [Suspect]
     Active Substance: FENTANYL CITRATE
     Dosage: 650 UG (FREQ:1 H)
     Route: 041
  4. FENTANYL CITRATE [Suspect]
     Active Substance: FENTANYL CITRATE
     Dosage: 200 UG, AS NEEDED (DEMAND DOSE WITH A 10-MINUTE LOCKOUT)
     Route: 041
  5. LORAZEPAM [Concomitant]
     Active Substance: LORAZEPAM
     Indication: Cancer pain
     Dosage: UNK
     Route: 060
  6. LORAZEPAM [Concomitant]
     Active Substance: LORAZEPAM
     Indication: Agitation
  7. HALOPERIDOL [Concomitant]
     Active Substance: HALOPERIDOL
     Indication: Cancer pain
     Dosage: UNK
  8. HALOPERIDOL [Concomitant]
     Active Substance: HALOPERIDOL
     Indication: Agitation

REACTIONS (2)
  - Hyperaesthesia [Recovering/Resolving]
  - Off label use [Unknown]
